FAERS Safety Report 25293502 (Version 4)
Quarter: 2025Q3

REPORT INFORMATION
  Report Type: Spontaneous
  Country: US (occurrence: US)
  Receive Date: 20250510
  Receipt Date: 20250821
  Transmission Date: 20251021
  Serious: Yes (Disabling)
  Sender: SANOFI AVENTIS
  Company Number: US-SA-2025SA127024

PATIENT
  Age: 80 Year
  Sex: Female

DRUGS (1)
  1. DUPIXENT [Suspect]
     Active Substance: DUPILUMAB
     Indication: Dermatitis atopic
     Dosage: 300 MG, QOW
     Route: 058
     Dates: end: 202504

REACTIONS (11)
  - Arthralgia [Unknown]
  - Gait disturbance [Unknown]
  - Dry skin [Not Recovered/Not Resolved]
  - Sleep disorder due to a general medical condition [Not Recovered/Not Resolved]
  - Arthritis [Unknown]
  - Pruritus [Not Recovered/Not Resolved]
  - Skin exfoliation [Not Recovered/Not Resolved]
  - Dermatitis atopic [Unknown]
  - Rash pruritic [Unknown]
  - Rebound effect [Unknown]
  - Rash erythematous [Unknown]

NARRATIVE: CASE EVENT DATE: 20250101
